FAERS Safety Report 15287942 (Version 1)
Quarter: 2018Q3

REPORT INFORMATION
  Report Type: Spontaneous
  Country: US (occurrence: US)
  Receive Date: 20180817
  Receipt Date: 20180817
  Transmission Date: 20181010
  Serious: No
  Sender: FDA-Public Use
  Company Number: US-PFIZER INC-2018326289

PATIENT
  Age: 47 Year
  Sex: Male

DRUGS (1)
  1. GENOTROPIN MQ [Suspect]
     Active Substance: SOMATROPIN
     Dosage: 0.8 MG, DAILY
     Dates: start: 2007

REACTIONS (13)
  - Low density lipoprotein increased [Unknown]
  - Blood triglycerides increased [Unknown]
  - Blood testosterone increased [Unknown]
  - Glycosylated haemoglobin increased [Unknown]
  - Haemoglobin increased [Unknown]
  - Carbon dioxide decreased [Unknown]
  - Blood glucose increased [Unknown]
  - Haematocrit increased [Unknown]
  - Blood luteinising hormone decreased [Unknown]
  - Red blood cell count increased [Unknown]
  - Very low density lipoprotein increased [Unknown]
  - Blood follicle stimulating hormone decreased [Unknown]
  - Blood testosterone free increased [Unknown]

NARRATIVE: CASE EVENT DATE: 20171011
